FAERS Safety Report 4433477-6 (Version None)
Quarter: 2004Q3

REPORT INFORMATION
  Report Type: 
  Country: None (occurrence: None)
  Receive Date: 20040826
  Receipt Date: 20040818
  Transmission Date: 20050211
  Serious: Yes (Hospitalization)
  Sender: FDA-Public Use
  Company Number: GB-JNJFOC-20040805928

PATIENT
  Sex: Female

DRUGS (8)
  1. REMICADE [Suspect]
     Indication: RHEUMATOID ARTHRITIS
     Route: 042
  2. PROVERA [Concomitant]
  3. METHOTREXATE [Concomitant]
  4. HYDROXYCHLOROQUINE SULFATE [Concomitant]
  5. FOLIC ACID [Concomitant]
  6. CELECOXIB [Concomitant]
  7. ALENDRONATE SODIUM [Concomitant]
  8. LANSOPRAZOLE [Concomitant]

REACTIONS (1)
  - ENDOMETRIOMA [None]
